FAERS Safety Report 4577023-5 (Version None)
Quarter: 2005Q1

REPORT INFORMATION
  Report Type: 
  Country: None (occurrence: None)
  Receive Date: 20050208
  Receipt Date: 20050124
  Transmission Date: 20050727
  Serious: Yes (Death)
  Sender: FDA-Public Use
  Company Number: P2005000003

PATIENT
  Age: 76 Year
  Sex: Male

DRUGS (11)
  1. PLENAXIS [Suspect]
     Indication: PROSTATE CANCER
     Dosage: SEE IMAGE
     Route: 030
     Dates: start: 20040607, end: 20040607
  2. PLENAXIS [Suspect]
     Indication: PROSTATE CANCER
     Dosage: SEE IMAGE
     Route: 030
     Dates: start: 20040622, end: 20040622
  3. PLENAXIS [Suspect]
     Indication: PROSTATE CANCER
     Dosage: SEE IMAGE
     Route: 030
     Dates: start: 20040708, end: 20040708
  4. PLENAXIS [Suspect]
     Indication: PROSTATE CANCER
     Dosage: SEE IMAGE
     Route: 030
     Dates: start: 20040806, end: 20040806
  5. PLENAXIS [Suspect]
     Indication: PROSTATE CANCER
     Dosage: SEE IMAGE
     Route: 030
     Dates: start: 20040908, end: 20040908
  6. ZOMETA [Concomitant]
  7. PERCOCET (PARACETAMOL, OXYOCODONE HYDROCHLORIDE) [Concomitant]
  8. KADIAN ^KNOLL^ (MORPHINE SULFATE) [Concomitant]
  9. K-DUR 10 [Concomitant]
  10. LEXAPRO [Concomitant]
  11. LOPRESSOR [Concomitant]

REACTIONS (1)
  - DEATH [None]
